FAERS Safety Report 17770190 (Version 1)
Quarter: 2020Q2

REPORT INFORMATION
  Report Type: Spontaneous
  Country: US (occurrence: US)
  Receive Date: 20200512
  Receipt Date: 20200512
  Transmission Date: 20200714
  Serious: No
  Sender: FDA-Public Use
  Company Number: US-APOTEX-2020AP010156

PATIENT
  Sex: Female

DRUGS (2)
  1. AZELASTINE HCL OPTHALMIC SOLUTION [Suspect]
     Active Substance: AZELASTINE HYDROCHLORIDE
     Indication: DRY EYE
     Dosage: 2 GTT, Q.AM,
     Route: 031
  2. AZELASTINE HCL OPTHALMIC SOLUTION [Suspect]
     Active Substance: AZELASTINE HYDROCHLORIDE
     Dosage: 1 GTT, PRN, IN THE EVENING ON THE RIGHT EYE OCCASIONALLY
     Route: 031

REACTIONS (4)
  - Poor quality product administered [Unknown]
  - Liquid product physical issue [Unknown]
  - Product physical consistency issue [Unknown]
  - Eye irritation [Unknown]
